FAERS Safety Report 6742112-3 (Version None)
Quarter: 2010Q2

REPORT INFORMATION
  Report Type: 
  Country: None (occurrence: None)
  Receive Date: 20100526
  Receipt Date: 20100521
  Transmission Date: 20101027
  Serious: Yes (Life-Threatening, Other)
  Sender: FDA-Public Use
  Company Number: PHHY2010FR16213

PATIENT
  Sex: Female
  Weight: 61 kg

DRUGS (3)
  1. NISIS [Suspect]
     Indication: HYPERTENSION
     Dosage: 160 MG, QD
     Route: 048
     Dates: start: 20100205, end: 20100405
  2. LODOZ [Concomitant]
     Dosage: 10 MG
     Dates: start: 20001005
  3. HYPERIUM [Concomitant]

REACTIONS (2)
  - BLOOD PRESSURE INCREASED [None]
  - PARADOXICAL PRESSOR RESPONSE [None]
